FAERS Safety Report 8951363 (Version 3)
Quarter: 2013Q1

REPORT INFORMATION
  Report Type: Spontaneous
  Country: JP (occurrence: JP)
  Receive Date: 20121207
  Receipt Date: 20130326
  Transmission Date: 20140127
  Serious: No
  Sender: FDA-Public Use
  Company Number: JP-MERCK-1212JPN001001

PATIENT
  Age: 65 Year
  Sex: Female

DRUGS (12)
  1. REFLEX [Suspect]
     Indication: DEPRESSION
     Dosage: 3.75 MG, QD
     Route: 048
     Dates: start: 20120217, end: 20121209
  2. REFLEX [Suspect]
     Indication: INSOMNIA
     Dosage: 15 MG, QD
     Route: 048
     Dates: start: 20121226
  3. PAXIL [Suspect]
     Indication: DEPRESSION
     Dosage: 5 MG, QD
     Route: 048
     Dates: start: 20120217, end: 20120330
  4. PAXIL [Suspect]
     Dosage: 10 MG, QD
     Route: 048
     Dates: start: 20120330, end: 20120629
  5. PAXIL [Suspect]
     Dosage: 13.75 MG, QD
     Route: 048
     Dates: start: 20120629, end: 20121209
  6. PAXIL [Suspect]
     Dosage: 10 MG, QD
     Route: 048
     Dates: start: 20121210, end: 20121217
  7. PAXIL [Suspect]
     Dosage: 5 MG, QD
     Route: 048
     Dates: start: 20121217, end: 20121225
  8. PAXIL [Suspect]
     Dosage: 10 MG, QD
     Route: 048
     Dates: start: 20121226
  9. BAYASPIRIN [Suspect]
     Indication: CEREBRAL INFARCTION
     Dosage: 100 MG, QD
     Route: 048
     Dates: start: 20121029, end: 20121209
  10. GASLON [Suspect]
     Indication: GASTRITIS
     Dosage: 2 MG, QD
     Route: 048
     Dates: start: 20121029, end: 20121209
  11. ZOLPIDEM TARTRATE [Concomitant]
     Indication: INSOMNIA
     Dosage: 5 MG, QD
     Route: 048
     Dates: start: 20120217, end: 20121019
  12. OLANZAPINE [Concomitant]
     Indication: DEPRESSION
     Dosage: 0.625 MG, QD
     Route: 048
     Dates: start: 20120217, end: 20120224

REACTIONS (1)
  - Long QT syndrome [Recovered/Resolved]
